FAERS Safety Report 8488647-7 (Version None)
Quarter: 2012Q3

REPORT INFORMATION
  Report Type: 
  Country: None (occurrence: None)
  Receive Date: 20120705
  Receipt Date: 20120703
  Transmission Date: 20120928
  Serious: Yes (Death, Hospitalization, Other)
  Sender: FDA-Public Use
  Company Number: PHHY2012IT050142

PATIENT
  Sex: Female

DRUGS (5)
  1. AFINITOR [Suspect]
     Dates: start: 20120515
  2. DEXAMETHASONE SODIUM PHOSPHATE [Concomitant]
     Dosage: 4 MG, UNK
     Route: 048
     Dates: start: 20110930, end: 20120514
  3. AFINITOR [Suspect]
     Indication: RENAL CELL CARCINOMA
     Dosage: 5 MG, DAILY
     Route: 048
     Dates: start: 20111121, end: 20120514
  4. OMEPRAZOLE [Concomitant]
     Dosage: 20 MG, UNK
     Route: 048
  5. RAMIPRIL [Concomitant]
     Dosage: 1.25 MG, UNK
     Route: 048

REACTIONS (17)
  - COGNITIVE DISORDER [None]
  - HYPERTRIGLYCERIDAEMIA [None]
  - DYSPNOEA EXERTIONAL [None]
  - BUNDLE BRANCH BLOCK LEFT [None]
  - SINUS RHYTHM [None]
  - ATRIAL FIBRILLATION [None]
  - INTERSTITIAL LUNG DISEASE [None]
  - PULMONARY CONGESTION [None]
  - ASTHENIA [None]
  - HYPERCHOLESTEROLAEMIA [None]
  - DECREASED APPETITE [None]
  - CARDIOMEGALY [None]
  - THROMBOCYTOPENIA [None]
  - PYREXIA [None]
  - TACHYCARDIA [None]
  - NODULE [None]
  - LEUKOPENIA [None]
